FAERS Safety Report 10435308 (Version 5)
Quarter: 2018Q4

REPORT INFORMATION
  Report Type: Spontaneous
  Country: TR (occurrence: TR)
  Receive Date: 20140908
  Receipt Date: 20181203
  Transmission Date: 20190204
  Serious: Yes (Other)
  Sender: FDA-Public Use
  Company Number: TR-JNJFOC-20140902864

PATIENT
  Age: 24 Year
  Sex: Female

DRUGS (7)
  1. ZYRTEC [Suspect]
     Active Substance: CETIRIZINE HYDROCHLORIDE
     Indication: PRODUCT USED FOR UNKNOWN INDICATION
     Route: 048
  2. PHENIRAMINE MALEATE [Concomitant]
     Active Substance: PHENIRAMINE MALEATE
     Indication: URTICARIA CHRONIC
     Route: 065
  3. ZYRTEC [Suspect]
     Active Substance: CETIRIZINE HYDROCHLORIDE
     Indication: PRODUCT USED FOR UNKNOWN INDICATION
     Route: 048
  4. HYDROXYZINE HYDROCHLORIDE. [Suspect]
     Active Substance: HYDROXYZINE HYDROCHLORIDE
     Indication: PRODUCT USED FOR UNKNOWN INDICATION
     Route: 065
  5. ZYRTEC [Suspect]
     Active Substance: CETIRIZINE HYDROCHLORIDE
     Route: 048
  6. ZYRTEC [Suspect]
     Active Substance: CETIRIZINE HYDROCHLORIDE
     Route: 048
  7. ADRENALINE [Concomitant]
     Active Substance: EPINEPHRINE
     Indication: URTICARIA CHRONIC
     Route: 065

REACTIONS (3)
  - Angioedema [Recovering/Resolving]
  - Urticaria chronic [Recovering/Resolving]
  - Drug hypersensitivity [Recovering/Resolving]
